FAERS Safety Report 6200980-8 (Version None)
Quarter: 2009Q2

REPORT INFORMATION
  Report Type: 
  Country: None (occurrence: None)
  Receive Date: 20090525
  Receipt Date: 20090511
  Transmission Date: 20091009
  Serious: Yes (Other)
  Sender: FDA-Public Use
  Company Number: FR-ELI_LILLY_AND_COMPANY-FR200905001803

PATIENT
  Sex: Male

DRUGS (4)
  1. ALIMTA [Suspect]
     Indication: MALIGNANT MEDIASTINAL NEOPLASM
     Dosage: UNK, UNKNOWN
     Route: 065
     Dates: start: 20090205
  2. CISPLATIN [Concomitant]
     Indication: ADENOCARCINOMA
     Dosage: UNK, UNKNOWN
     Route: 042
     Dates: start: 20090205, end: 20090226
  3. SOLU-MEDROL [Concomitant]
     Indication: PREMEDICATION
     Dosage: 120 MG, UNKNOWN
     Route: 065
  4. ONDANSETRON HCL [Concomitant]
     Indication: PROPHYLAXIS OF NAUSEA AND VOMITING
     Dosage: UNK, UNKNOWN
     Route: 065

REACTIONS (3)
  - ANGIOEDEMA [None]
  - PRURITUS [None]
  - URTICARIA [None]
